FAERS Safety Report 11702139 (Version 1)
Quarter: 2015Q4

REPORT INFORMATION
  Report Type: Report from Study
  Country: JP (occurrence: JP)
  Receive Date: 20151105
  Receipt Date: 20151105
  Transmission Date: 20160304
  Serious: Yes (Other)
  Sender: FDA-Public Use
  Company Number: JP-REGENERON PHARMACEUTICALS, INC.-2015-13445

PATIENT

DRUGS (25)
  1. BAYASPIRIN [Concomitant]
     Active Substance: ASPIRIN
     Indication: THROMBOSIS PROPHYLAXIS
     Dosage: 100 MG, QD
     Dates: start: 20130415
  2. DILATE PLUS [Concomitant]
     Indication: FUNDOSCOPY
     Dosage: OPTIMUM DOSE ONCE PER ONCE PER INDIRECT OPHTHALMOSCOPY
     Route: 047
     Dates: start: 20150528
  3. EYLEA [Suspect]
     Active Substance: AFLIBERCEPT
     Dosage: 50 MICROLITRE, ONCE, VISIT 6, RIGHT EYE
     Route: 031
     Dates: start: 20151005, end: 20151005
  4. PLACEBO [Suspect]
     Active Substance: UNSPECIFIED INGREDIENT
     Indication: POLYPOIDAL CHOROIDAL VASCULOPATHY
     Dosage: UNK
  5. VOGLIBOSE [Concomitant]
     Active Substance: VOGLIBOSE
     Indication: DIABETES MELLITUS
     Dosage: 0.2 MG, TID
     Route: 048
     Dates: start: 2012
  6. NEXIUM [Concomitant]
     Active Substance: ESOMEPRAZOLE MAGNESIUM
     Indication: PROPHYLAXIS AGAINST GASTROINTESTINAL ULCER
     Dosage: 10 MG, QD
     Route: 048
     Dates: start: 20130415
  7. AMLODIPIN [Concomitant]
     Active Substance: AMLODIPINE BESYLATE
     Indication: HYPERTENSION
     Dosage: 5 MG, QD
     Route: 048
     Dates: start: 20130325
  8. DILATE PLUS [Concomitant]
     Indication: MYDRIASIS
     Dosage: OPTIMUM DOSE ONCE PER ONCE PER ONCE PER STUDY DRUG INJECTION
     Route: 047
     Dates: start: 20150619
  9. LEVOFLOXACIN. [Concomitant]
     Active Substance: LEVOFLOXACIN
     Indication: INFECTION PROPHYLAXIS
     Dosage: RIGHT EYE, OPTIMUM DOSE  ONCE PER STUDY DRUG INJECTION
     Route: 047
  10. EYLEA [Suspect]
     Active Substance: AFLIBERCEPT
     Dosage: 50 MICROLITRE, ONCE, VISIT 4, RIGHT EYE
     Route: 031
     Dates: start: 20150810, end: 20150810
  11. VISUDYNE [Suspect]
     Active Substance: VERTEPORFIN
  12. DIOVAN [Concomitant]
     Active Substance: VALSARTAN
     Indication: HYPERTENSION
     Dosage: 160 MG, QD
     Route: 048
     Dates: start: 20130325
  13. TARIVID [Concomitant]
     Active Substance: OFLOXACIN
     Indication: INFECTION PROPHYLAXIS
     Dosage: OPTIMUM DOSE  ONCE PER STUDY DRUG INJECTION
     Dates: start: 20150619
  14. EYLEA [Suspect]
     Active Substance: AFLIBERCEPT
     Dosage: 50 MICROLITRE, ONCE, VISIT 3, RIGHT EYE
     Route: 031
     Dates: start: 20150713, end: 20150713
  15. BLINDED LASER [Suspect]
     Active Substance: DEVICE
     Indication: POLYPOIDAL CHOROIDAL VASCULOPATHY
     Dosage: UNK
  16. FLUORESCITE [Concomitant]
     Active Substance: FLUORESCEIN SODIUM
     Indication: ANGIOGRAM RETINA
     Dosage: 250 MG, ONCE
     Route: 042
     Dates: start: 20150609
  17. EYLEA [Suspect]
     Active Substance: AFLIBERCEPT
     Indication: POLYPOIDAL CHOROIDAL VASCULOPATHY
     Dosage: 50 MICROLITRE, ONCE, VISIT 2, RIGHT EYE
     Route: 031
     Dates: start: 20150622
  18. VERTEPORFIN [Concomitant]
     Active Substance: VERTEPORFIN
  19. LIOVEL [Concomitant]
     Active Substance: ALOGLIPTIN BENZOATE\PIOGLITAZONE HYDROCHLORIDE
     Indication: DIABETES MELLITUS
     Dosage: 67.06 MG, QD
     Route: 048
     Dates: start: 20130325
  20. TRUSOPT [Concomitant]
     Active Substance: DORZOLAMIDE HYDROCHLORIDE
     Indication: GLAUCOMA
     Dosage: 1 GTT, BID, EXCEPT FOR IVT INJECTION DAY
     Route: 047
     Dates: start: 20110401
  21. DILATE PLUS [Concomitant]
     Indication: OPHTHALMOLOGICAL EXAMINATION
     Dosage: OPTIMUM DOSE ONCE PER FA,FP
     Route: 047
     Dates: start: 20150609
  22. XALATAN [Concomitant]
     Active Substance: LATANOPROST
     Indication: GLAUCOMA
     Dosage: 1DROPS QD EXCEPT FOR IVT INJECTION DAY
     Route: 047
     Dates: start: 20090602
  23. OPHTHAGREEN [Concomitant]
     Indication: OPHTHALMOLOGICAL EXAMINATION
     Dosage: 25MG ONCE PER ICGA
     Route: 042
     Dates: start: 20150609
  24. BENOXIL [Concomitant]
     Active Substance: BENOXINATE HYDROCHLORIDE
     Indication: ANAESTHESIA
     Dosage: OPTIMUM DOSE ONCE PER STUDY DRUG INJECTION
     Route: 047
     Dates: start: 20150619
  25. XYLOCAIN [LIDOCAINE] [Concomitant]
     Indication: ANAESTHESIA
     Dosage: OPTIMUM DOSE  ONCE PER STUDY DRUG INJECTION
     Route: 047

REACTIONS (1)
  - Coronary artery stenosis [Unknown]

NARRATIVE: CASE EVENT DATE: 20151009
